FAERS Safety Report 21715790 (Version 1)
Quarter: 2022Q4

REPORT INFORMATION
  Report Type: Spontaneous
  Country: GB (occurrence: GB)
  Receive Date: 20221212
  Receipt Date: 20221212
  Transmission Date: 20230113
  Serious: Yes (Other)
  Sender: FDA-Public Use
  Company Number: None

PATIENT
  Age: 65 Year
  Sex: Male
  Weight: 77 kg

DRUGS (7)
  1. SUMATRIPTAN [Suspect]
     Active Substance: SUMATRIPTAN
     Indication: Headache
     Dosage: 1 TABLET AT ONSET, CAN BE REPEATED 2 HOURS AFTER; NO MORE THAN 6 TABLETS A DAY
     Route: 065
     Dates: start: 20221017
  2. AMLODIPINE [Concomitant]
     Active Substance: AMLODIPINE BESYLATE
     Indication: Headache
     Dosage: 1 DOSAGE FORM, QD (ONE TO BE TAKEN EACH DAY)
     Route: 065
     Dates: start: 20221017
  3. FEXOFENADINE [Concomitant]
     Active Substance: FEXOFENADINE HYDROCHLORIDE
     Indication: Seasonal allergy
     Dosage: 1 DOSAGE FORM, QD (ONE TO BE TAKEN EACH DAY)
     Route: 065
     Dates: start: 20221025
  4. MOXIFLOXACIN [Concomitant]
     Active Substance: MOXIFLOXACIN
     Dosage: 1 DOSAGE FORM, QD (ONE TO BE TAKEN EACH DAY)
     Route: 065
     Dates: start: 20221025
  5. PREDNISOLONE [Concomitant]
     Active Substance: PREDNISOLONE
     Dosage: 6 DOSAGE FORM, QD (SIX TO BE TAKEN EACH DAY)
     Route: 065
     Dates: start: 20221025
  6. SUMATRIPTAN [Concomitant]
     Active Substance: SUMATRIPTAN
     Indication: Headache
     Dosage: 1 TABLET AT ONSET, CAN BE REPEATED 2 HOURS AFTER; NO MORE THAN 6 TABLETS A DAY
     Route: 065
     Dates: start: 20221017
  7. COMIRNATY [Concomitant]
     Active Substance: TOZINAMERAN
     Dosage: UNK, 1 DOSE
     Route: 065
     Dates: start: 20221029, end: 20221029

REACTIONS (1)
  - Swelling face [Unknown]
